FAERS Safety Report 8798554 (Version 1)
Quarter: 2012Q4

REPORT INFORMATION
  Report Type: Spontaneous
  Country: US (occurrence: None)
  Receive Date: 20120914
  Receipt Date: 20120914
  Transmission Date: 20130627
  Serious: Yes (Hospitalization)
  Sender: FDA-Public Use
  Company Number: 2012AP002920

PATIENT
  Age: 54 Year
  Sex: Male

DRUGS (3)
  1. ALPRAZOLAM [Suspect]
  2. OXYCODONE [Suspect]
  3. COCAINE [Suspect]

REACTIONS (7)
  - Unresponsive to stimuli [None]
  - Acidosis [None]
  - Respiratory arrest [None]
  - Pneumonia aspiration [None]
  - Leukoencephalopathy [None]
  - Overdose [None]
  - Hypoxia [None]
